FAERS Safety Report 8676804 (Version 2)
Quarter: 2013Q4

REPORT INFORMATION
  Report Type: Spontaneous
  Country: AT (occurrence: AT)
  Receive Date: 20120723
  Receipt Date: 20131105
  Transmission Date: 20140711
  Serious: Yes (Other)
  Sender: FDA-Public Use
  Company Number: AT-009507513-1207AUT006803

PATIENT
  Age: 51 Year
  Sex: Male
  Weight: 76.9 kg

DRUGS (8)
  1. ISENTRESS [Suspect]
     Indication: IMMUNODEFICIENCY
     Dosage: 400 MG, BID
     Route: 048
     Dates: start: 20110926
  2. CIPRALEX [Concomitant]
     Indication: DEPRESSION
     Dosage: 10 MG, UNK
     Dates: start: 20100425
  3. PREZISTA [Concomitant]
     Indication: IMMUNODEFICIENCY
     Dosage: 800 MG, UNK
     Dates: start: 20100626
  4. NORVIR [Concomitant]
     Indication: IMMUNODEFICIENCY
     Dosage: 100 MG, UNK
     Dates: start: 20100626
  5. DICLOBENE [Concomitant]
     Indication: PAIN
     Dosage: 100 MG, UNK
     Dates: start: 20110512
  6. OMEPRAZOLE [Concomitant]
     Indication: PROPHYLAXIS
     Dosage: 20 MG, UNK
     Dates: start: 20110512
  7. LESCOL [Concomitant]
     Indication: HYPERCHOLESTEROLAEMIA
     Dosage: 80 MG, UNK
     Dates: start: 20110515
  8. EMTRIVA [Concomitant]
     Indication: IMMUNODEFICIENCY
     Dosage: 200 MG, UNK
     Dates: start: 20110926

REACTIONS (2)
  - Loss of consciousness [Recovered/Resolved]
  - Depression [Recovered/Resolved]
